FAERS Safety Report 7728483-X (Version None)
Quarter: 2011Q3

REPORT INFORMATION
  Report Type: 
  Country: None (occurrence: None)
  Receive Date: 20110905
  Receipt Date: 20110831
  Transmission Date: 20111222
  Serious: Yes (Other)
  Sender: FDA-Public Use
  Company Number: PHHY2011US43688

PATIENT
  Sex: Male

DRUGS (5)
  1. BACLOFEN [Concomitant]
     Indication: MULTIPLE SCLEROSIS
     Dosage: 10 MG, QD
  2. INSULIN [Concomitant]
     Indication: DIABETES MELLITUS
     Dosage: UNK UKN, UNK
     Route: 058
  3. GABAPENTIN [Concomitant]
     Indication: MULTIPLE SCLEROSIS
     Dosage: 1000 MG, TID
  4. VALIUM [Concomitant]
     Dosage: 10 MG, TID
  5. GILENYA [Suspect]
     Indication: MULTIPLE SCLEROSIS
     Dosage: 0.5 MG, DAILY
     Route: 048
     Dates: start: 20110519

REACTIONS (12)
  - BACK PAIN [None]
  - HEART RATE DECREASED [None]
  - BLOOD GLUCOSE DECREASED [None]
  - DIZZINESS [None]
  - FATIGUE [None]
  - SOMNOLENCE [None]
  - VOMITING [None]
  - ASTHENIA [None]
  - DYSPEPSIA [None]
  - MALAISE [None]
  - APHAGIA [None]
  - NAUSEA [None]
